FAERS Safety Report 9603142 (Version 2)
Quarter: 2013Q4

REPORT INFORMATION
  Report Type: Report from Study
  Country: BR (occurrence: BR)
  Receive Date: 20131007
  Receipt Date: 20131119
  Transmission Date: 20140711
  Serious: Yes (Death, Hospitalization)
  Sender: FDA-Public Use
  Company Number: BR-INCYTE CORPORATION-2013IN002251

PATIENT
  Age: 55 Year
  Sex: Male

DRUGS (3)
  1. INC424 [Suspect]
     Indication: MYELOFIBROSIS
     Dosage: 5 MG, BID
     Route: 048
     Dates: start: 20130725, end: 20130822
  2. OMEPRAZOLE [Concomitant]
     Dosage: UNK
     Dates: start: 20130618
  3. PURAN T4 [Concomitant]
     Dosage: UNK

REACTIONS (2)
  - Respiratory failure [Fatal]
  - Multi-organ failure [Fatal]
